FAERS Safety Report 8559919-2 (Version None)
Quarter: 2012Q3

REPORT INFORMATION
  Report Type: 
  Country: None (occurrence: None)
  Receive Date: 20120802
  Receipt Date: 20120726
  Transmission Date: 20120928
  Serious: Yes (Hospitalization, Other)
  Sender: FDA-Public Use
  Company Number: PHEH2012US014667

PATIENT
  Sex: Male

DRUGS (8)
  1. LAMISIL [Suspect]
     Dosage: 250 MG, UNK
     Route: 048
  2. WARFARIN [Concomitant]
     Dosage: 2.5 MG, UNK
  3. DIGOXIN [Concomitant]
     Dosage: 0.125 MG, UNK
  4. TERAZOSIN HYDROCHLORIDE [Concomitant]
     Dosage: 5 MG, UNK
  5. FUROSEMIDE [Concomitant]
     Dosage: 620 MG, UNK
  6. MIRTAZAPINE [Concomitant]
     Dosage: 15 MG, UNK
  7. LEVOTHYROXINE SODIUM [Concomitant]
     Dosage: 75 MG, UNK
  8. ATENOLOL [Concomitant]
     Dosage: 50 MG, UNK

REACTIONS (2)
  - AGEUSIA [None]
  - FLUID RETENTION [None]
